FAERS Safety Report 13625818 (Version 3)
Quarter: 2017Q2

REPORT INFORMATION
  Report Type: Spontaneous
  Country: US (occurrence: US)
  Receive Date: 20170608
  Receipt Date: 20170619
  Transmission Date: 20170830
  Serious: No
  Sender: FDA-Public Use
  Company Number: US-BAYER-2017-109605

PATIENT
  Age: 86 Year
  Sex: Male
  Weight: 72 kg

DRUGS (4)
  1. ROSUVASTATIN CALCIUM. [Concomitant]
     Active Substance: ROSUVASTATIN CALCIUM
  2. MIRALAX [Suspect]
     Active Substance: POLYETHYLENE GLYCOL 3350
     Indication: GASTROINTESTINAL DISORDER
     Dosage: UNK
  3. BAYER ASPIRIN [Concomitant]
     Active Substance: ASPIRIN
  4. VITAMIN D [Concomitant]
     Active Substance: CHOLECALCIFEROL

REACTIONS (8)
  - Product use issue [Unknown]
  - Drug ineffective [Unknown]
  - Product use issue [Unknown]
  - Drug ineffective [Unknown]
  - Anal incontinence [Unknown]
  - Product use issue [Unknown]
  - Constipation [None]
  - Drug ineffective [Unknown]

NARRATIVE: CASE EVENT DATE: 2017
